FAERS Safety Report 9787851 (Version 2)
Quarter: 2014Q1

REPORT INFORMATION
  Report Type: Spontaneous
  Country: US (occurrence: US)
  Receive Date: 20131230
  Receipt Date: 20140203
  Transmission Date: 20141002
  Serious: Yes (Hospitalization, Other)
  Sender: FDA-Public Use
  Company Number: US-BAYER-2013-156449

PATIENT
  Age: 21 Year
  Sex: Female
  Weight: 61.22 kg

DRUGS (4)
  1. MIRENA [Suspect]
     Indication: CONTRACEPTION
     Dosage: 20 MCG/24HR, CONT
     Route: 015
     Dates: start: 20090204, end: 20101229
  2. MIRENA [Suspect]
     Indication: CONTRACEPTION
     Dosage: 20 MCG/24HR, CONT
     Route: 015
     Dates: start: 20090204, end: 20101229
  3. FLAGYL [Concomitant]
  4. KEFLEX [Concomitant]
     Route: 048

REACTIONS (16)
  - Uterine perforation [None]
  - Injury [None]
  - Abdominal pain [None]
  - Pelvic pain [None]
  - Nausea [None]
  - Ovarian cyst [None]
  - Infertility female [None]
  - Endometriosis [None]
  - Emotional distress [None]
  - Medical device complication [None]
  - Internal injury [None]
  - Procedural haemorrhage [None]
  - Depression [None]
  - Anxiety [None]
  - Fear [None]
  - Medical device discomfort [None]
